FAERS Safety Report 24928694 (Version 1)
Quarter: 2025Q1

REPORT INFORMATION
  Report Type: Spontaneous
  Country: US (occurrence: None)
  Receive Date: 20250204
  Receipt Date: 20250204
  Transmission Date: 20250409
  Serious: Yes (Other)
  Sender: FDA-CTU
  Company Number: None

PATIENT
  Age: 58 Year
  Sex: Female

DRUGS (4)
  1. GLATIRAMER ACETATE [Suspect]
     Active Substance: GLATIRAMER ACETATE
     Indication: Multiple sclerosis
  2. vitamins B12 [Concomitant]
  3. C [Concomitant]
  4. D [Concomitant]

REACTIONS (11)
  - Flushing [None]
  - Lacrimation increased [None]
  - Eye swelling [None]
  - Skin discolouration [None]
  - Hyperhidrosis [None]
  - Feeling hot [None]
  - Dyspnoea [None]
  - Nausea [None]
  - Fatigue [None]
  - Palpitations [None]
  - Pain [None]

NARRATIVE: CASE EVENT DATE: 20241007
